FAERS Safety Report 18719180 (Version 2)
Quarter: 2021Q1

REPORT INFORMATION
  Report Type: Spontaneous
  Country: US (occurrence: US)
  Receive Date: 20210108
  Receipt Date: 20210301
  Transmission Date: 20210419
  Serious: No
  Sender: FDA-Public Use
  Company Number: US-PFIZER INC-2021005382

PATIENT
  Age: 30 Year
  Sex: Female

DRUGS (2)
  1. XELJANZ [Suspect]
     Active Substance: TOFACITINIB CITRATE
     Indication: COLITIS ULCERATIVE
     Dosage: 10 MG, 2X/DAY
     Route: 048
     Dates: start: 2020
  2. XELJANZ [Suspect]
     Active Substance: TOFACITINIB CITRATE
     Dosage: 5 MG, 2X/DAY
     Route: 048
     Dates: end: 202101

REACTIONS (8)
  - Illness [Unknown]
  - Eating disorder [Unknown]
  - Fatigue [Unknown]
  - Product dose omission in error [Unknown]
  - Neuralgia [Unknown]
  - Inflammation [Unknown]
  - Feeling abnormal [Unknown]
  - Depressed mood [Unknown]
